FAERS Safety Report 8136519-X (Version None)
Quarter: 2012Q1

REPORT INFORMATION
  Report Type: 
  Country: None (occurrence: None)
  Receive Date: 20120214
  Receipt Date: 20120206
  Transmission Date: 20120608
  Serious: Yes (Other)
  Sender: FDA-Public Use
  Company Number: PHHY2012CA011294

PATIENT
  Sex: Female

DRUGS (1)
  1. ZOLEDRONOC ACID [Suspect]
     Indication: OSTEOPOROSIS
     Dosage: UNK UKN, UNK
     Route: 042
     Dates: start: 20110110

REACTIONS (7)
  - DYSPNOEA [None]
  - PAIN IN EXTREMITY [None]
  - ASTHENIA [None]
  - MUSCULOSKELETAL CHEST PAIN [None]
  - ACCIDENT [None]
  - MOBILITY DECREASED [None]
  - NAUSEA [None]
